FAERS Safety Report 23371206 (Version 1)
Quarter: 2024Q1

REPORT INFORMATION
  Report Type: Spontaneous
  Country: US (occurrence: US)
  Receive Date: 20240105
  Receipt Date: 20240105
  Transmission Date: 20240410
  Serious: Yes (Other)
  Sender: FDA-Public Use
  Company Number: US-SANOFI-01889926

PATIENT
  Age: 78 Year
  Sex: Male

DRUGS (1)
  1. ENOXAPARIN SODIUM [Suspect]
     Active Substance: ENOXAPARIN SODIUM

REACTIONS (4)
  - Cerebrovascular accident [Unknown]
  - Rebound effect [Unknown]
  - Confusional state [Unknown]
  - Disorientation [Unknown]
